FAERS Safety Report 23733596 (Version 2)
Quarter: 2024Q2

REPORT INFORMATION
  Report Type: Spontaneous
  Country: US (occurrence: US)
  Receive Date: 20240411
  Receipt Date: 20240516
  Transmission Date: 20240715
  Serious: No
  Sender: FDA-Public Use
  Company Number: US-BoehringerIngelheim-2024-BI-021111

PATIENT
  Sex: Female

DRUGS (1)
  1. SPIRIVA RESPIMAT [Suspect]
     Active Substance: TIOTROPIUM BROMIDE
     Indication: Product used for unknown indication
     Dosage: 2 SPRAYS A DAY
     Route: 055

REACTIONS (6)
  - Retching [Unknown]
  - Dyspnoea [Unknown]
  - Product delivery mechanism issue [Unknown]
  - Drug ineffective [Unknown]
  - Device malfunction [Unknown]
  - Device use error [Unknown]
